FAERS Safety Report 7907831-1 (Version None)
Quarter: 2011Q4

REPORT INFORMATION
  Report Type: 
  Country: None (occurrence: None)
  Receive Date: 20111110
  Receipt Date: 20111014
  Transmission Date: 20120403
  Serious: Yes (Hospitalization, Other)
  Sender: FDA-Public Use
  Company Number: CA-PFIZER INC-2011078160

PATIENT
  Age: 53 Year
  Sex: Female
  Weight: 58.05 kg

DRUGS (12)
  1. VARENICLINE TARTRATE [Suspect]
     Dosage: 0.5 MG, 1X/DAY
     Dates: start: 20110330, end: 20110402
  2. COCAINE [Concomitant]
     Dosage: UNK
  3. ASPIRIN [Concomitant]
     Dosage: 80 MG, 1X/DAY IN THE MORNING
  4. VARENICLINE TARTRATE [Suspect]
     Indication: SMOKING CESSATION THERAPY
     Dosage: UNK
  5. VARENICLINE TARTRATE [Suspect]
     Dosage: 1 MG, 2X/DAY
     Dates: start: 20110401, end: 20110406
  6. ADVAIR DISKUS 100/50 [Concomitant]
     Dosage: 250 UG-25 UG, 2 INHALATIONS 2X/DAILY
     Route: 055
  7. VENLAFAXINE [Concomitant]
     Dosage: 75 MG, 1X/DAY
  8. SPIRIVA [Concomitant]
     Dosage: 18 UG, INHALATION 1X/DAY REGULARLY
     Route: 055
  9. PMS-TRAZODONE [Concomitant]
     Dosage: 150 MG, 1X/DAY AT BEDTIME
  10. HYDROCHLOROTHIAZIDE [Concomitant]
     Dosage: 12.5 MG, 1X/DAY IN THE MORNING
  11. AVAPRO [Concomitant]
     Dosage: 300 MG, 1X/DAY IN THE MORNING
  12. VENTOLIN [Concomitant]
     Dosage: 100 UG 2 INHALATIONS 4X/DAILY AS NEEDED
     Route: 055

REACTIONS (18)
  - DELIRIUM [None]
  - AMNESIA [None]
  - MANIA [None]
  - ABNORMAL BEHAVIOUR [None]
  - AGITATION [None]
  - RED BLOOD CELL COUNT ABNORMAL [None]
  - EMOTIONAL DISORDER [None]
  - NERVOUSNESS [None]
  - MENTAL DISORDER [None]
  - DISTURBANCE IN ATTENTION [None]
  - NIGHTMARE [None]
  - SUICIDAL IDEATION [None]
  - LABORATORY TEST ABNORMAL [None]
  - CONFUSIONAL STATE [None]
  - AGGRESSION [None]
  - INCOHERENT [None]
  - WHITE BLOOD CELL COUNT ABNORMAL [None]
  - HYPERHIDROSIS [None]
